FAERS Safety Report 5896419-2 (Version None)
Quarter: 2008Q3

REPORT INFORMATION
  Report Type: 
  Country: None (occurrence: None)
  Receive Date: 20080923
  Receipt Date: 20080908
  Transmission Date: 20090109
  Serious: Yes (Death)
  Sender: FDA-Public Use
  Company Number: KADN20080348

PATIENT
  Sex: Male

DRUGS (3)
  1. MORPHINE [Suspect]
     Dates: end: 20050101
  2. HYDROMORPHONE HCL [Suspect]
     Dates: end: 20050101
  3. ALPRAZOLAM [Suspect]
     Dates: end: 20050101

REACTIONS (3)
  - COMPLETED SUICIDE [None]
  - OVERDOSE [None]
  - THERAPEUTIC AGENT TOXICITY [None]
